FAERS Safety Report 12225603 (Version 1)
Quarter: 2016Q1

REPORT INFORMATION
  Report Type: Spontaneous
  Country: US (occurrence: None)
  Receive Date: 20160330
  Receipt Date: 20160330
  Transmission Date: 20160526
  Serious: No
  Sender: FDA-Public Use
  Company Number: None

PATIENT
  Age: 53 Year
  Sex: Female

DRUGS (1)
  1. HUMIRA [Suspect]
     Active Substance: ADALIMUMAB
     Indication: PSORIATIC ARTHROPATHY
     Dosage: EVERY  WEEK
     Route: 058
     Dates: start: 20151211

REACTIONS (6)
  - Feeling hot [None]
  - Injection site rash [None]
  - Dry skin [None]
  - Nasal disorder [None]
  - Injection site pain [None]
  - Localised oedema [None]

NARRATIVE: CASE EVENT DATE: 20160326
